FAERS Safety Report 8069075-5 (Version None)
Quarter: 2012Q1

REPORT INFORMATION
  Report Type: 
  Country: None (occurrence: None)
  Receive Date: 20120125
  Receipt Date: 20111101
  Transmission Date: 20120608
  Serious: Yes (Other)
  Sender: FDA-Public Use
  Company Number: CA-JNJFOC-20120107592

PATIENT
  Sex: Female
  Weight: 77 kg

DRUGS (3)
  1. REMICADE [Suspect]
     Route: 042
     Dates: start: 20111101
  2. REMICADE [Suspect]
     Indication: HIDRADENITIS
     Route: 042
     Dates: start: 20111017
  3. METFORMIN HCL [Concomitant]
     Route: 065

REACTIONS (3)
  - INFUSION RELATED REACTION [None]
  - SYNCOPE [None]
  - NAUSEA [None]
